FAERS Safety Report 13882060 (Version 1)
Quarter: 2017Q3

REPORT INFORMATION
  Report Type: Report from Study
  Country: GB (occurrence: GB)
  Receive Date: 20170818
  Receipt Date: 20170818
  Transmission Date: 20171127
  Serious: Yes (Hospitalization, Other)
  Sender: FDA-Public Use
  Company Number: GB-AMGEN-GBRNI2017124713

PATIENT
  Age: 90 Year
  Sex: Female
  Weight: 77 kg

DRUGS (12)
  1. DOVONEX [Concomitant]
     Active Substance: CALCIPOTRIENE
     Dosage: UNK
     Dates: start: 19800101
  2. ETANERCEPT [Suspect]
     Active Substance: ETANERCEPT
     Dosage: 25 MG, 2X/WEEK
     Route: 065
     Dates: start: 20110606, end: 20170213
  3. ISOSORBIDE MONONITRATE. [Concomitant]
     Active Substance: ISOSORBIDE MONONITRATE
     Dosage: UNK
     Dates: start: 19990101
  4. ENALAPRIL [Concomitant]
     Active Substance: ENALAPRIL
     Dosage: UNK
     Dates: start: 19990101
  5. DITHRANOL [Concomitant]
     Active Substance: ANTHRALIN
     Dosage: UNK
     Dates: start: 19660101
  6. EUMOVATE [Concomitant]
     Active Substance: CLOBETASONE BUTYRATE
     Dosage: UNK
     Dates: start: 19900101
  7. FUROSEMIDE. [Concomitant]
     Active Substance: FUROSEMIDE
     Dosage: UNK
     Dates: start: 19990101
  8. ETANERCEPT [Suspect]
     Active Substance: ETANERCEPT
     Indication: PSORIASIS
     Dosage: 25 MG, 2X/WEEK
     Route: 065
     Dates: start: 20090203, end: 20100816
  9. PARACETAMOL [Concomitant]
     Active Substance: ACETAMINOPHEN
     Dosage: UNK
     Dates: start: 20150608
  10. SIMVASTATIN. [Concomitant]
     Active Substance: SIMVASTATIN
     Dosage: UNK
     Dates: start: 20140315
  11. AQUEOUS [Concomitant]
     Dosage: UNK
     Dates: start: 19990101
  12. LEVOTHYROXINE. [Concomitant]
     Active Substance: LEVOTHYROXINE
     Dosage: UNK
     Dates: start: 19991201

REACTIONS (1)
  - Gastrointestinal carcinoma [Not Recovered/Not Resolved]

NARRATIVE: CASE EVENT DATE: 20170115
